FAERS Safety Report 8796101 (Version 2)
Quarter: 2012Q4

REPORT INFORMATION
  Report Type: 
  Country: US (occurrence: US)
  Receive Date: 20120920
  Receipt Date: 20121105
  Transmission Date: 20130627
  Serious: Yes (Death)
  Sender: FDA-Public Use
  Company Number: US-BRISTOL-MYERS SQUIBB COMPANY-16970766

PATIENT
  Age: 74 Year
  Sex: Male

DRUGS (1)
  1. BARACLUDE [Suspect]
     Indication: HEPATITIS B
     Dosage: 1DF:0.5 units nos
     Route: 048
     Dates: start: 20100501, end: 20120717

REACTIONS (1)
  - Pneumocystis jiroveci pneumonia [Fatal]
